FAERS Safety Report 13938574 (Version 1)
Quarter: 2017Q3

REPORT INFORMATION
  Report Type: Spontaneous
  Country: US (occurrence: US)
  Receive Date: 20170905
  Receipt Date: 20170905
  Transmission Date: 20171127
  Serious: Yes (Disabling)
  Sender: FDA-Public Use
  Company Number: None

PATIENT
  Age: 83 Year
  Sex: Male
  Weight: 77.9 kg

DRUGS (2)
  1. WARFARIN [Suspect]
     Active Substance: WARFARIN
     Indication: ATRIAL FIBRILLATION
     Dosage: ?          OTHER FREQUENCY:MWF;?
     Route: 048
     Dates: end: 20170630
  2. WARFARIN [Suspect]
     Active Substance: WARFARIN
     Indication: ATRIAL FIBRILLATION
     Dosage: ?          OTHER FREQUENCY:TUE, THUR, SAT, SU;?
     Route: 048
     Dates: end: 20170630

REACTIONS (8)
  - Atrial fibrillation [None]
  - Subdural haematoma [None]
  - Respiratory distress [None]
  - Depressed level of consciousness [None]
  - Pneumonia aspiration [None]
  - Brain midline shift [None]
  - Lethargy [None]
  - Acute myocardial infarction [None]

NARRATIVE: CASE EVENT DATE: 20170630
